FAERS Safety Report 8548855-3 (Version None)
Quarter: 2012Q3

REPORT INFORMATION
  Report Type: 
  Country: None (occurrence: None)
  Receive Date: 20120730
  Receipt Date: 20120726
  Transmission Date: 20120928
  Serious: Yes (Hospitalization)
  Sender: FDA-Public Use
  Company Number: PHHO2012KR010237

PATIENT
  Sex: Male
  Weight: 53.8 kg

DRUGS (4)
  1. EVEROLIMUS [Suspect]
     Dosage: UNK
     Dates: start: 20120621
  2. PACLITAXEL [Suspect]
     Indication: SMALL CELL LUNG CANCER STAGE UNSPECIFIED
     Dosage: 175 MG/M2, EVERY 3 WEEKS
     Route: 042
     Dates: start: 20120302
  3. EVEROLIMUS [Suspect]
     Indication: SMALL CELL LUNG CANCER STAGE UNSPECIFIED
     Dosage: 5 MG, UNK
     Route: 048
     Dates: start: 20120302
  4. PACLITAXEL [Suspect]
     Dosage: UNK
     Dates: start: 20120621

REACTIONS (1)
  - PERICARDIAL EFFUSION [None]
